FAERS Safety Report 16991090 (Version 1)
Quarter: 2019Q4

REPORT INFORMATION
  Report Type: Spontaneous
  Country: DE (occurrence: DE)
  Receive Date: 20191104
  Receipt Date: 20191104
  Transmission Date: 20200122
  Serious: Yes (Hospitalization)
  Sender: FDA-Public Use
  Company Number: DE-ELI_LILLY_AND_COMPANY-DE201910012900

PATIENT
  Sex: Female
  Weight: 68 kg

DRUGS (3)
  1. PEGFILGRASTIM [Suspect]
     Active Substance: PEGFILGRASTIM
     Indication: PRODUCT USED FOR UNKNOWN INDICATION
     Dosage: 6 MG, UNKNOWN
     Route: 065
     Dates: start: 20191008
  2. RAMUCIRUMAB [Suspect]
     Active Substance: RAMUCIRUMAB
     Indication: BRONCHIAL CARCINOMA
     Dosage: 525 MG, UNKNOWN
     Route: 042
     Dates: start: 20191007, end: 20191007
  3. DOCETAXEL. [Suspect]
     Active Substance: DOCETAXEL
     Indication: BRONCHIAL CARCINOMA
     Dosage: 94.31 MG, UNKNOWN
     Route: 042
     Dates: start: 20191007, end: 20191007

REACTIONS (1)
  - General physical health deterioration [Not Recovered/Not Resolved]

NARRATIVE: CASE EVENT DATE: 20191015
